FAERS Safety Report 10146094 (Version 1)
Quarter: 2014Q2

REPORT INFORMATION
  Report Type: Spontaneous
  Country: US (occurrence: None)
  Receive Date: 20140430
  Receipt Date: 20140430
  Transmission Date: 20141212
  Serious: Yes (Other)
  Sender: FDA-Public Use
  Company Number: None

PATIENT
  Age: 20 Year
  Sex: Male
  Weight: 81.8 kg

DRUGS (2)
  1. VYVANCE [Suspect]
     Indication: ATTENTION DEFICIT/HYPERACTIVITY DISORDER
     Route: 048
     Dates: start: 20140409, end: 20140417
  2. INTRAVENOUS IMMUNOGOBULIN G [Concomitant]

REACTIONS (6)
  - Personality change [None]
  - Thinking abnormal [None]
  - Mania [None]
  - Psychotic disorder [None]
  - Personality disorder [None]
  - Aggression [None]
